FAERS Safety Report 21153262 (Version 2)
Quarter: 2023Q1

REPORT INFORMATION
  Report Type: Spontaneous
  Country: DK (occurrence: DK)
  Receive Date: 20220731
  Receipt Date: 20230321
  Transmission Date: 20230418
  Serious: Yes (Life-Threatening, Other)
  Sender: FDA-Public Use
  Company Number: DK-DKMA-ADR 27134071

PATIENT
  Age: 45 Year
  Sex: Female
  Weight: 75 kg

DRUGS (2)
  1. ENBREL [Suspect]
     Active Substance: ETANERCEPT
     Indication: Rheumatoid arthritis
     Dosage: 50 MG, WEEKLY
     Route: 058
     Dates: start: 20140301, end: 20210308
  2. METHOTREXATE SODIUM [Suspect]
     Active Substance: METHOTREXATE SODIUM
     Indication: Rheumatoid arthritis
     Dosage: 20 MG, WEEKLY
     Route: 058
     Dates: start: 20201125, end: 20210308

REACTIONS (13)
  - Pneumocystis jirovecii pneumonia [Recovered/Resolved]
  - Memory impairment [Unknown]
  - Headache [Recovered/Resolved]
  - Fatigue [Unknown]
  - Respiratory failure [Recovered/Resolved]
  - Muscular weakness [Unknown]
  - Pyrexia [Recovered/Resolved]
  - Cough [Not Recovered/Not Resolved]
  - Dyspnoea [Not Recovered/Not Resolved]
  - Nausea [Recovered/Resolved]
  - Malaise [Recovered/Resolved]
  - Bronchiectasis [Unknown]
  - Emphysema [Unknown]

NARRATIVE: CASE EVENT DATE: 20201214
